FAERS Safety Report 8935657 (Version 1)
Quarter: 2012Q4

REPORT INFORMATION
  Report Type: 
  Country: IE (occurrence: IE)
  Receive Date: 20121130
  Receipt Date: 20121130
  Transmission Date: 20130627
  Serious: Yes (Death)
  Sender: FDA-Public Use
  Company Number: IE-MILLENNIUM PHARMACEUTICALS, INC.-2012-08365

PATIENT

DRUGS (14)
  1. VELCADE [Suspect]
     Indication: MULTIPLE MYELOMA
     Dosage: 1.3 mg/m2, Cyclic
     Route: 040
     Dates: start: 20120124
  2. NEORECORMON [Concomitant]
     Dosage: 30000 IU, UNK
  3. ZANIDIP [Concomitant]
     Dosage: 10 mg, UNK
  4. LASIX                              /00032601/ [Concomitant]
     Dosage: 40 mg, UNK
  5. PREDNISOLONE [Concomitant]
     Dosage: 60 mg/m2, UNK
  6. MELPHALAN [Concomitant]
  7. SOLPADOL [Concomitant]
  8. KEPPRA [Concomitant]
     Dosage: 750 mg, UNK
  9. MST                                /00036302/ [Concomitant]
     Dosage: 10 mg, UNK
  10. OMEPRAZOLE [Concomitant]
     Dosage: 40 mg, UNK
  11. CALCICHEW [Concomitant]
  12. VALTREX [Concomitant]
     Dosage: 500 mg, UNK
  13. LIPITOR [Concomitant]
     Dosage: 40 mg, UNK
  14. VIDISIC                            /01024401/ [Concomitant]

REACTIONS (1)
  - Death [Fatal]
